FAERS Safety Report 23141224 (Version 2)
Quarter: 2023Q4

REPORT INFORMATION
  Report Type: Spontaneous
  Country: ES (occurrence: ES)
  Receive Date: 20231103
  Receipt Date: 20231109
  Transmission Date: 20240110
  Serious: Yes (Other)
  Sender: FDA-Public Use
  Company Number: ES-CELLTRION INC.-2023ES019361

PATIENT

DRUGS (8)
  1. BEVACIZUMAB [Suspect]
     Active Substance: BEVACIZUMAB
     Indication: Hereditary haemorrhagic telangiectasia
     Dosage: 5 MG/KG, EVERY 3.5 DAY, 4 DOSES EVERY 2 WEEKS
     Route: 065
  2. BEVACIZUMAB [Suspect]
     Active Substance: BEVACIZUMAB
     Dosage: 10 MG/KG, 1 EVERY 1 MONTH, DOSE INCREASED
     Route: 065
  3. BEVACIZUMAB [Suspect]
     Active Substance: BEVACIZUMAB
     Dosage: 5 MG/KG, EVERY 1 MONTH, MAINTENANCE REGIME
     Route: 065
  4. BEVACIZUMAB [Suspect]
     Active Substance: BEVACIZUMAB
     Dosage: 5 MG/KG, EVERY 5.25 DAY, 4 DOSES EVERY 3 WEEKS
     Route: 065
  5. AFLIBERCEPT [Suspect]
     Active Substance: AFLIBERCEPT
     Indication: Hereditary haemorrhagic telangiectasia
     Dosage: 4 MG/KG, Q2WEEKS
  6. AFLIBERCEPT [Suspect]
     Active Substance: AFLIBERCEPT
     Indication: Gastrointestinal haemorrhage
  7. WHOLE BLOOD [Concomitant]
     Active Substance: WHOLE BLOOD
  8. IRON [Concomitant]
     Active Substance: IRON

REACTIONS (7)
  - Atrial fibrillation [Recovering/Resolving]
  - Iron deficiency anaemia [Recovering/Resolving]
  - Left ventricular failure [Unknown]
  - Tachyphylaxis [Recovering/Resolving]
  - Hereditary haemorrhagic telangiectasia [Recovering/Resolving]
  - Off label use [Unknown]
  - Drug ineffective for unapproved indication [Unknown]
